FAERS Safety Report 5518033-0 (Version None)
Quarter: 2007Q4

REPORT INFORMATION
  Report Type: 
  Country: None (occurrence: None)
  Receive Date: 20071115
  Receipt Date: 20071107
  Transmission Date: 20080405
  Serious: Yes (Hospitalization)
  Sender: FDA-Public Use
  Company Number: FR-WYE-G00576707

PATIENT
  Age: 8 Month
  Sex: Male

DRUGS (4)
  1. ADVIL [Suspect]
     Indication: TEETHING
     Dosage: ONE SINGLE DOSE
     Route: 048
     Dates: start: 20071001, end: 20071001
  2. ZYMAFLUOR [Suspect]
     Dosage: UNSPECIFIED
     Route: 048
     Dates: start: 20070101, end: 20070101
  3. TAZOCILLINE [Suspect]
     Dosage: UNSPECIFIED
     Route: 042
     Dates: start: 20071001
  4. ACETAMINOPHEN [Suspect]
     Indication: PYREXIA
     Dosage: 1 RECTAL CAPSULE ON 01-OCT-2007 AND 2 RECTAL CAPSULES ON 04-OCT-2007
     Route: 054
     Dates: start: 20071001, end: 20071004

REACTIONS (2)
  - FEBRILE BONE MARROW APLASIA [None]
  - GRANULOCYTES MATURATION ARREST [None]
